FAERS Safety Report 5061730-4 (Version None)
Quarter: 2006Q3

REPORT INFORMATION
  Report Type: 
  Country: None (occurrence: None)
  Receive Date: 20060703
  Receipt Date: 20051230
  Transmission Date: 20061208
  Serious: No
  Sender: FDA-Public Use
  Company Number: 2006S1000104

PATIENT
  Age: 67 Year
  Sex: Male
  Weight: 91.6266 kg

DRUGS (12)
  1. CLOZAPINE [Suspect]
     Indication: SCHIZOPHRENIA, PARANOID TYPE
     Dosage: 200 MG;BID;PO
     Route: 048
     Dates: start: 20030206
  2. ETHANOL/CERESIN/PETROLATUM/PARAFFIN, LIQUID/WOOL ALCOHOLS [Concomitant]
  3. ACETAMINOPHEN [Concomitant]
  4. ALBUTEROL SPIROS [Concomitant]
  5. DOCUSATE SODIUM [Concomitant]
  6. GLYCEROL 2.6% [Concomitant]
  7. IPRATROPIUM BROMIDE [Concomitant]
  8. MAGNESIUM HYDROXIDE TAB [Concomitant]
  9. VITAMINS NOS/MINERALS NOS [Concomitant]
  10. SENNA [Concomitant]
  11. SERTRALINE [Concomitant]
  12. VALPROIC ACID [Concomitant]

REACTIONS (1)
  - GRANULOCYTOPENIA [None]
